FAERS Safety Report 9912943 (Version 1)
Quarter: 2014Q1

REPORT INFORMATION
  Report Type: Spontaneous
  Country: US (occurrence: None)
  Receive Date: 20140218
  Receipt Date: 20140218
  Transmission Date: 20141002
  Serious: Yes (Disabling, Other)
  Sender: FDA-Public Use
  Company Number: None

PATIENT
  Age: 60 Year
  Sex: Male

DRUGS (1)
  1. MINOXIDIL [Suspect]
     Indication: ANDROGENETIC ALOPECIA
     Dosage: TWO EVENTS: 2008-2009; 2010-2011

REACTIONS (4)
  - Erectile dysfunction [None]
  - Libido decreased [None]
  - Skin disorder [None]
  - Rotator cuff syndrome [None]
